FAERS Safety Report 23463481 (Version 1)
Quarter: 2024Q1

REPORT INFORMATION
  Report Type: Spontaneous
  Country: JP (occurrence: JP)
  Receive Date: 20240131
  Receipt Date: 20240131
  Transmission Date: 20240409
  Serious: Yes (Other)
  Sender: FDA-Public Use
  Company Number: JP-ONO-2024JP000474

PATIENT
  Age: 51 Year
  Sex: Female

DRUGS (1)
  1. OPDIVO [Suspect]
     Active Substance: NIVOLUMAB
     Indication: Gastric cancer
     Dosage: 360 MG, Q4W
     Route: 041

REACTIONS (3)
  - Immune-mediated hypothyroidism [Unknown]
  - Type 1 diabetes mellitus [Unknown]
  - Cardiac failure [Unknown]
